FAERS Safety Report 10384733 (Version 1)
Quarter: 2014Q3

REPORT INFORMATION
  Report Type: Spontaneous
  Country: IT (occurrence: IT)
  Receive Date: 20140814
  Receipt Date: 20140814
  Transmission Date: 20150326
  Serious: Yes (Hospitalization)
  Sender: FDA-Public Use
  Company Number: IT-ACTAVIS-2014-17372

PATIENT
  Age: 44 Year
  Sex: Female
  Weight: 42 kg

DRUGS (2)
  1. DOCETAXEL ACTAVIS [Suspect]
     Active Substance: DOCETAXEL
     Indication: BREAST CANCER
     Dosage: 75 MG/M2, CYCLICAL
     Route: 042
     Dates: start: 20140617, end: 20140730
  2. CYCLOPHOSPHAMIDE. [Concomitant]
     Active Substance: CYCLOPHOSPHAMIDE
     Indication: BREAST CANCER
     Dosage: 600 MG/M2, UNK
     Route: 042
     Dates: start: 20140617, end: 20140730

REACTIONS (4)
  - Erythema [Unknown]
  - Cystitis [Unknown]
  - Febrile neutropenia [Unknown]
  - Feeling hot [Unknown]

NARRATIVE: CASE EVENT DATE: 20140628
